FAERS Safety Report 8781384 (Version 1)
Quarter: 2012Q4

REPORT INFORMATION
  Report Type: 
  Country: US (occurrence: US)
  Receive Date: 20120913
  Receipt Date: 20120913
  Transmission Date: 20130627
  Serious: No
  Sender: FDA-Public Use
  Company Number: US-VERTEX PHARMACEUTICAL INC.-AE-2012-007199

PATIENT

DRUGS (4)
  1. INCIVEK [Suspect]
     Indication: HEPATITIS C
     Route: 048
     Dates: start: 20120420, end: 20120508
  2. PEGASYS [Concomitant]
     Indication: HEPATITIS C
     Dates: start: 20120420, end: 20120508
  3. RIBAVIRIN [Concomitant]
     Indication: HEPATITIS C
     Dates: start: 20120420, end: 20120508
  4. LISINOPRIL [Concomitant]
     Route: 048

REACTIONS (2)
  - Swollen tongue [Unknown]
  - Lip swelling [Unknown]
